FAERS Safety Report 4921279-3 (Version None)
Quarter: 2006Q1

REPORT INFORMATION
  Report Type: 
  Country: None (occurrence: None)
  Receive Date: 20060221
  Receipt Date: 20060206
  Transmission Date: 20060701
  Serious: Yes (Death, Other)
  Sender: FDA-Public Use
  Company Number: 2006BH002416

PATIENT

DRUGS (3)
  1. VINCRISTINE SULFATE [Suspect]
     Indication: AMYLOIDOSIS
     Dosage: ONCE, IV; I CYCLE
     Route: 042
  2. DEXAMETHASONE [Suspect]
     Indication: AMYLOIDOSIS
     Dosage: ONCE; IV; 1 CYCLE
     Route: 042
  3. ADRIAMYCIN PFS [Suspect]
     Indication: AMYLOIDOSIS
     Dosage: ONCE; IV; 1 CYCLE
     Route: 042

REACTIONS (2)
  - FLUID RETENTION [None]
  - SUDDEN CARDIAC DEATH [None]
